FAERS Safety Report 23108040 (Version 1)
Quarter: 2023Q4

REPORT INFORMATION
  Report Type: Other
  Country: US (occurrence: None)
  Receive Date: 20231026
  Receipt Date: 20231026
  Transmission Date: 20240110
  Serious: Yes (Other)
  Sender: FDA-Public Use
  Company Number: US-ROCHE-2287241

PATIENT
  Age: 40 Year
  Sex: Female
  Weight: 87.168 kg

DRUGS (14)
  1. OCREVUS [Suspect]
     Active Substance: OCRELIZUMAB
     Indication: Relapsing multiple sclerosis
     Dosage: ON 28/MAR/2019 AND 25/SEP/2019, SHE RECEIVED THERAPY WITH OCRELIZUMAB.
     Route: 042
     Dates: start: 20190312
  2. PREDNISONE [Concomitant]
     Active Substance: PREDNISONE
     Dates: start: 202004
  3. ACETAMINOPHEN [Concomitant]
     Active Substance: ACETAMINOPHEN
  4. BACLOFEN [Concomitant]
     Active Substance: BACLOFEN
  5. CETIRIZINE HYDROCHLORIDE [Concomitant]
     Active Substance: CETIRIZINE HYDROCHLORIDE
  6. FAMOTIDINE [Concomitant]
     Active Substance: FAMOTIDINE
  7. HYDROXYCHLOROQUINE [Concomitant]
     Active Substance: HYDROXYCHLOROQUINE
  8. IBUPROFEN [Concomitant]
     Active Substance: IBUPROFEN
  9. LAMOTRIGINE [Concomitant]
     Active Substance: LAMOTRIGINE
  10. LEVOTHYROXINE [Concomitant]
     Active Substance: LEVOTHYROXINE
  11. NURTEC ODT [Concomitant]
     Active Substance: RIMEGEPANT SULFATE
  12. OMEPRAZOLE [Concomitant]
     Active Substance: OMEPRAZOLE
  13. ROSUVASTATIN [Concomitant]
     Active Substance: ROSUVASTATIN
  14. SYMBICORT [Concomitant]
     Active Substance: BUDESONIDE\FORMOTEROL FUMARATE DIHYDRATE

REACTIONS (25)
  - Crohn^s disease [Not Recovered/Not Resolved]
  - Abdominal pain upper [Not Recovered/Not Resolved]
  - Frequent bowel movements [Not Recovered/Not Resolved]
  - Faeces soft [Unknown]
  - Asthma [Unknown]
  - Paraesthesia [Unknown]
  - Abdominal discomfort [Not Recovered/Not Resolved]
  - Diarrhoea [Recovered/Resolved]
  - Ear pruritus [Recovered/Resolved]
  - Secretion discharge [Not Recovered/Not Resolved]
  - Throat irritation [Recovered/Resolved]
  - Pruritus [Not Recovered/Not Resolved]
  - Headache [Recovered/Resolved]
  - Migraine [Not Recovered/Not Resolved]
  - Influenza like illness [Recovered/Resolved]
  - Fatigue [Unknown]
  - Chest pain [Unknown]
  - Respiratory disorder [Unknown]
  - Nausea [Not Recovered/Not Resolved]
  - Feeding disorder [Not Recovered/Not Resolved]
  - Gastrooesophageal reflux disease [Not Recovered/Not Resolved]
  - Respiratory tract infection [Unknown]
  - Vocal cord disorder [Unknown]
  - Pneumonia [Unknown]
  - Irritable bowel syndrome [Unknown]

NARRATIVE: CASE EVENT DATE: 20190312
